FAERS Safety Report 15551411 (Version 1)
Quarter: 2018Q4

REPORT INFORMATION
  Report Type: Spontaneous
  Country: US (occurrence: US)
  Receive Date: 20181025
  Receipt Date: 20181025
  Transmission Date: 20190205
  Serious: Yes (Other)
  Sender: FDA-Public Use
  Company Number: US-AMNEAL PHARMACEUTICALS-2018AMN00520

PATIENT
  Sex: Male

DRUGS (2)
  1. ISOTRETINOIN. [Suspect]
     Active Substance: ISOTRETINOIN
     Dosage: 10 MG, 2X/DAY
     Route: 065
     Dates: start: 20180711, end: 20180814
  2. ISOTRETINOIN. [Suspect]
     Active Substance: ISOTRETINOIN
     Dosage: 10 MG, 1X/DAY
     Dates: start: 20180814, end: 20180816

REACTIONS (1)
  - White blood cell count decreased [Unknown]
